FAERS Safety Report 12602354 (Version 1)
Quarter: 2016Q3

REPORT INFORMATION
  Report Type: Spontaneous
  Country: US (occurrence: US)
  Receive Date: 20160728
  Receipt Date: 20160728
  Transmission Date: 20161109
  Serious: No
  Sender: FDA-Public Use
  Company Number: US-BAUSCH-BL-2016-012257

PATIENT
  Age: 39 Year
  Sex: Female
  Weight: 54.03 kg

DRUGS (3)
  1. CVS EYE ALLERGY RELIEF [Suspect]
     Active Substance: NAPHAZOLINE HYDROCHLORIDE\PHENIRAMINE MALEATE
     Indication: EYE ALLERGY
     Route: 047
     Dates: start: 2016, end: 2016
  2. CVS EYE ALLERGY RELIEF [Suspect]
     Active Substance: NAPHAZOLINE HYDROCHLORIDE\PHENIRAMINE MALEATE
     Dosage: 4 OR 5 DROPS IN HER RIGHT EYE
     Route: 047
     Dates: start: 20160426, end: 20160426
  3. VITAMINS [Concomitant]
     Active Substance: VITAMINS
     Indication: SUPPLEMENTATION THERAPY
     Route: 048

REACTIONS (7)
  - Photophobia [Recovered/Resolved]
  - Mydriasis [Recovered/Resolved]
  - Medication error [Recovered/Resolved]
  - Wrong technique in product usage process [None]
  - Impaired work ability [None]
  - Eye complication associated with device [Recovered/Resolved]
  - Feeling abnormal [Recovered/Resolved]

NARRATIVE: CASE EVENT DATE: 201604
